FAERS Safety Report 16081734 (Version 1)
Quarter: 2019Q1

REPORT INFORMATION
  Report Type: Spontaneous
  Country: GB (occurrence: GB)
  Receive Date: 20190316
  Receipt Date: 20190316
  Transmission Date: 20190418
  Serious: Yes (Other)
  Sender: FDA-Public Use
  Company Number: GB-009507513-1903GBR003424

PATIENT
  Sex: Male

DRUGS (2)
  1. INTRON A [Suspect]
     Active Substance: INTERFERON ALFA-2B
     Indication: HAIRY CELL LEUKAEMIA
     Dosage: UNK
     Dates: start: 2004
  2. INTRON A [Suspect]
     Active Substance: INTERFERON ALFA-2B
     Dosage: 1 MEGA-INTERNATIONAL UNIT, QW

REACTIONS (2)
  - Intentional product misuse [Unknown]
  - Drug effect incomplete [Unknown]

NARRATIVE: CASE EVENT DATE: 2016
